FAERS Safety Report 5143166-0 (Version None)
Quarter: 2006Q4

REPORT INFORMATION
  Report Type: 
  Country: None (occurrence: None)
  Receive Date: 20061031
  Receipt Date: 20061031
  Transmission Date: 20070319
  Serious: Yes (Hospitalization)
  Sender: FDA-Public Use
  Company Number: None

PATIENT
  Age: 61 Year
  Sex: Male
  Weight: 70.3 kg

DRUGS (1)
  1. MORPHINE [Suspect]

REACTIONS (2)
  - DYSPNOEA [None]
  - MIOSIS [None]
